FAERS Safety Report 17976408 (Version 1)
Quarter: 2020Q3

REPORT INFORMATION
  Report Type: Spontaneous
  Country: FR (occurrence: FR)
  Receive Date: 20200703
  Receipt Date: 20200703
  Transmission Date: 20201103
  Serious: Yes (Hospitalization)
  Sender: FDA-Public Use
  Company Number: FR-ROCHE-2634602

PATIENT
  Age: 60 Year
  Sex: Female
  Weight: 56 kg

DRUGS (18)
  1. NEORAL [Concomitant]
     Active Substance: CYCLOSPORINE
  2. ORELOX [Concomitant]
     Active Substance: CEFPODOXIME
  3. VALGANCICLOVIR. [Suspect]
     Active Substance: VALGANCICLOVIR
     Indication: CYTOMEGALOVIRUS INFECTION REACTIVATION
     Route: 048
     Dates: start: 20200212, end: 20200515
  4. MOXONIDINE [Concomitant]
     Active Substance: MOXONIDINE
  5. BRILIQUE [Concomitant]
     Active Substance: TICAGRELOR
  6. AMLODIPINE BESILATE [Concomitant]
     Active Substance: AMLODIPINE BESYLATE
  7. BISOPROLOL FUMARATE. [Concomitant]
     Active Substance: BISOPROLOL FUMARATE
  8. ATORVASTATINE [ATORVASTATIN] [Concomitant]
     Active Substance: ATORVASTATIN
  9. EUPRESSYL [URAPIDIL] [Concomitant]
     Active Substance: URAPIDIL
  10. FUROSEMIDE. [Concomitant]
     Active Substance: FUROSEMIDE
  11. PANTOPRAZOLE [Concomitant]
     Active Substance: PANTOPRAZOLE
  12. MYFORTIC [Concomitant]
     Active Substance: MYCOPHENOLATE SODIUM
  13. LYRICA [Concomitant]
     Active Substance: PREGABALIN
  14. ALLOPURINOL. [Concomitant]
     Active Substance: ALLOPURINOL
  15. ASPIRINE PROTECT [Concomitant]
     Active Substance: ASPIRIN
  16. BICARBONATE SODIUM [Concomitant]
     Active Substance: SODIUM BICARBONATE
  17. MEDROL [Concomitant]
     Active Substance: METHYLPREDNISOLONE
  18. RAMIPRIL. [Concomitant]
     Active Substance: RAMIPRIL

REACTIONS (1)
  - Agranulocytosis [Recovered/Resolved]

NARRATIVE: CASE EVENT DATE: 20200513
